FAERS Safety Report 7177915-7 (Version None)
Quarter: 2010Q4

REPORT INFORMATION
  Report Type: 
  Country: None (occurrence: None)
  Receive Date: 20101220
  Receipt Date: 20101209
  Transmission Date: 20110411
  Serious: No
  Sender: FDA-Public Use
  Company Number: US-US-EMD SERONO, INC.-235555J09USA

PATIENT
  Sex: Female

DRUGS (4)
  1. REBIF [Suspect]
     Indication: MULTIPLE SCLEROSIS
     Route: 058
     Dates: start: 20090922
  2. PROZAC [Concomitant]
     Dates: end: 20090101
  3. PROZAC [Concomitant]
     Route: 065
     Dates: start: 20090101
  4. IBUPROFEN [Concomitant]
     Indication: PREMEDICATION

REACTIONS (6)
  - CENTRAL NERVOUS SYSTEM LESION [None]
  - INFLUENZA LIKE ILLNESS [None]
  - INJECTION SITE REACTION [None]
  - MUSCLE SPASMS [None]
  - MUSCULAR WEAKNESS [None]
  - TREMOR [None]
